FAERS Safety Report 4366560-4 (Version None)
Quarter: 2004Q2

REPORT INFORMATION
  Report Type: 
  Country: None (occurrence: None)
  Receive Date: 20040527
  Receipt Date: 20040512
  Transmission Date: 20050107
  Serious: Yes (Hospitalization)
  Sender: FDA-Public Use
  Company Number: US-MERCK-0405USA01948B2

PATIENT
  Sex: Male
  Weight: 1 kg

DRUGS (2)
  1. BETAMETHASONE [Concomitant]
     Indication: PREMATURE LABOUR
  2. INDOCIN [Suspect]
     Indication: PREMATURE LABOUR

REACTIONS (13)
  - CAESAREAN SECTION [None]
  - DILATATION ATRIAL [None]
  - DILATATION VENTRICULAR [None]
  - HYPOXIA [None]
  - MEDICATION ERROR [None]
  - NEONATAL RESPIRATORY DISTRESS SYNDROME [None]
  - PREMATURE BABY [None]
  - PULMONARY ALVEOLAR HAEMORRHAGE [None]
  - PULMONARY ARTERY DILATATION [None]
  - PULMONARY HYPERTENSION [None]
  - TWIN PREGNANCY [None]
  - UTERINE CONTRACTIONS DURING PREGNANCY [None]
  - VAGINAL HAEMORRHAGE [None]
